FAERS Safety Report 21731943 (Version 2)
Quarter: 2023Q1

REPORT INFORMATION
  Report Type: Report from Study
  Country: FR (occurrence: FR)
  Receive Date: 20221215
  Receipt Date: 20230227
  Transmission Date: 20230418
  Serious: Yes (Hospitalization)
  Sender: FDA-Public Use
  Company Number: FR-002147023-NVSC2022FR255154

PATIENT
  Age: 2 Year
  Sex: Male

DRUGS (2)
  1. OMNITROPE [Suspect]
     Active Substance: SOMATROPIN
     Indication: Product used for unknown indication
     Dosage: 0.5 MG (FREQUENCY 6 DAYS OUT OF 7)
     Route: 065
     Dates: start: 20221104
  2. OMNITROPE [Suspect]
     Active Substance: SOMATROPIN
     Dosage: 0.5 MG (FREQUENCY 6 DAYS OUT OF 7)
     Route: 065
     Dates: start: 20221106, end: 20221123

REACTIONS (5)
  - Gait disturbance [Recovering/Resolving]
  - Syncope [Recovering/Resolving]
  - Arthralgia [Recovering/Resolving]
  - Device issue [Unknown]
  - Drug dose omission by device [Unknown]

NARRATIVE: CASE EVENT DATE: 20221106
